FAERS Safety Report 18025117 (Version 5)
Quarter: 2021Q4

REPORT INFORMATION
  Report Type: Spontaneous
  Country: US (occurrence: US)
  Receive Date: 20200715
  Receipt Date: 20211213
  Transmission Date: 20220303
  Serious: Yes (Other)
  Sender: FDA-Public Use
  Company Number: US-PFIZER INC-2020269396

PATIENT
  Age: 70 Year
  Sex: Female
  Weight: 67.13 kg

DRUGS (4)
  1. IBRANCE [Suspect]
     Active Substance: PALBOCICLIB
     Indication: Breast cancer metastatic
     Dosage: 100 MG, CYCLIC (ONCE DAILY THREE WEEKS AND ONE WEEK BREAK)
     Dates: start: 2018
  2. IBRANCE [Suspect]
     Active Substance: PALBOCICLIB
     Dosage: 100 MG, CYCLIC (ONCE DAILY THREE WEEKS AND ONE WEEK BREAK)
     Dates: start: 2018
  3. IBRANCE [Suspect]
     Active Substance: PALBOCICLIB
     Dosage: 100 MG, CYCLIC (ONCE DAILY THREE WEEKS AND ONE WEEK BREAK)
     Dates: start: 2018
  4. IBRANCE [Suspect]
     Active Substance: PALBOCICLIB
     Dosage: 100 MG, CYCLIC (ONCE DAILY FOR 3 WEEKS, THEN OFF FOR 1 WEEK)
     Dates: start: 201808

REACTIONS (13)
  - Glaucoma [Unknown]
  - Loss of consciousness [Unknown]
  - Hyperhidrosis [Unknown]
  - Constipation [Not Recovered/Not Resolved]
  - Flatulence [Not Recovered/Not Resolved]
  - Bacterial test positive [Unknown]
  - Hypotension [Recovering/Resolving]
  - Fall [Recovering/Resolving]
  - Blood electrolytes abnormal [Unknown]
  - Fluid retention [Unknown]
  - Peripheral swelling [Unknown]
  - Urinary tract infection [Unknown]
  - Alopecia [Unknown]

NARRATIVE: CASE EVENT DATE: 20200101
